FAERS Safety Report 6618050-3 (Version None)
Quarter: 2010Q1

REPORT INFORMATION
  Report Type: 
  Country: None (occurrence: None)
  Receive Date: 20100308
  Receipt Date: 20100303
  Transmission Date: 20100710
  Serious: Yes (Death)
  Sender: FDA-Public Use
  Company Number: GR-BRISTOL-MYERS SQUIBB COMPANY-15002058

PATIENT
  Age: 55 Year
  Sex: Female

DRUGS (2)
  1. COAPROVEL [Suspect]
  2. APROVEL [Suspect]

REACTIONS (1)
  - PULMONARY OEDEMA [None]
